FAERS Safety Report 23919755 (Version 2)
Quarter: 2024Q2

REPORT INFORMATION
  Report Type: Spontaneous
  Country: US (occurrence: US)
  Receive Date: 20240530
  Receipt Date: 20240605
  Transmission Date: 20240716
  Serious: No
  Sender: FDA-Public Use
  Company Number: US-PFIZER INC-202400181210

PATIENT
  Age: 61 Year
  Sex: Female

DRUGS (1)
  1. IBRANCE [Suspect]
     Active Substance: PALBOCICLIB
     Dosage: 75 MG, CYCLIC, ONCE DAILY FOR 21 DAYS OF 28 DAY CYCLE
     Route: 048
     Dates: start: 20240525

REACTIONS (2)
  - Vision blurred [Not Recovered/Not Resolved]
  - Anosmia [Not Recovered/Not Resolved]
